FAERS Safety Report 10055876 (Version 2)
Quarter: 2014Q2

REPORT INFORMATION
  Report Type: Spontaneous
  Country: CO (occurrence: CO)
  Receive Date: 20140403
  Receipt Date: 20140527
  Transmission Date: 20141212
  Serious: Yes (Other)
  Sender: FDA-Public Use
  Company Number: CO-JNJFOC-20140317414

PATIENT
  Sex: Male

DRUGS (1)
  1. REMICADE [Suspect]
     Indication: COLITIS ULCERATIVE
     Route: 042

REACTIONS (5)
  - Tachycardia [Unknown]
  - Paraesthesia [Recovering/Resolving]
  - Infusion related reaction [Recovering/Resolving]
  - Hyperhidrosis [Unknown]
  - Chills [Unknown]
